FAERS Safety Report 17631496 (Version 2)
Quarter: 2020Q2

REPORT INFORMATION
  Report Type: Spontaneous
  Country: US (occurrence: US)
  Receive Date: 20200406
  Receipt Date: 20200520
  Transmission Date: 20200713
  Serious: No
  Sender: FDA-Public Use
  Company Number: US-VERTEX PHARMACEUTICALS-2020-007201

PATIENT
  Age: 34 Year
  Sex: Male

DRUGS (1)
  1. TRIKAFTA [Suspect]
     Active Substance: ELEXACAFTOR\IVACAFTOR\TEZACAFTOR
     Indication: CYSTIC FIBROSIS
     Dosage: 2 TABS (100MG ELEXACAFTOR/50MG TEZACAFTOR/75MG IVACAFTOR) IN QAM AND 1 TAB (150MG IVACAFTOR) IN QPM
     Route: 048
     Dates: start: 20200306, end: 20200428

REACTIONS (3)
  - Blood bilirubin increased [Unknown]
  - Abdominal pain [Unknown]
  - Eye colour change [Unknown]

NARRATIVE: CASE EVENT DATE: 20200320
